FAERS Safety Report 8111714-4 (Version None)
Quarter: 2012Q1

REPORT INFORMATION
  Report Type: 
  Country: None (occurrence: None)
  Receive Date: 20120131
  Receipt Date: 20120120
  Transmission Date: 20120608
  Serious: Yes (Disabling, Other)
  Sender: FDA-Public Use
  Company Number: 2012MA000990

PATIENT
  Sex: Female
  Weight: 55.7924 kg

DRUGS (16)
  1. METOCLOPRAMIDE [Suspect]
     Indication: IMPAIRED GASTRIC EMPTYING
     Dates: start: 19970101, end: 20090301
  2. METOCLOPRAMIDE [Suspect]
     Indication: GASTROOESOPHAGEAL REFLUX DISEASE
     Dates: start: 19970101, end: 20090301
  3. AMBIEN [Concomitant]
  4. OXYCONTIN [Concomitant]
  5. CLIMARA [Concomitant]
  6. PAXIL [Concomitant]
  7. VALIUM [Concomitant]
  8. ELAVIL [Concomitant]
  9. LYRICA [Concomitant]
  10. M.V.I. [Concomitant]
  11. FEMTANYL [Concomitant]
  12. LIPITOR [Concomitant]
  13. LORTAB [Concomitant]
  14. NEURONTIN [Concomitant]
  15. OXYCODONE HCL [Concomitant]
  16. PREDNISONE [Concomitant]

REACTIONS (35)
  - TARDIVE DYSKINESIA [None]
  - ANXIETY [None]
  - PARAESTHESIA [None]
  - POSTURE ABNORMAL [None]
  - NEURALGIA [None]
  - ASTHENIA [None]
  - CHEST PAIN [None]
  - SARCOIDOSIS [None]
  - OPTIC NERVE INJURY [None]
  - MUSCLE ATROPHY [None]
  - UPPER MOTOR NEURONE LESION [None]
  - FINE MOTOR DELAY [None]
  - EMOTIONAL DISORDER [None]
  - FEELING ABNORMAL [None]
  - VISUAL FIELD DEFECT [None]
  - GAIT DISTURBANCE [None]
  - BODY TEMPERATURE DECREASED [None]
  - PAIN [None]
  - BACK PAIN [None]
  - PAIN IN EXTREMITY [None]
  - OEDEMA PERIPHERAL [None]
  - COORDINATION ABNORMAL [None]
  - MACULAR HOLE [None]
  - ARTHROPATHY [None]
  - DECREASED VIBRATORY SENSE [None]
  - CEREBELLAR ATAXIA [None]
  - PUPILLARY REFLEX IMPAIRED [None]
  - ECONOMIC PROBLEM [None]
  - VISION BLURRED [None]
  - BLINDNESS [None]
  - OPTIC NEUROPATHY [None]
  - HYPERREFLEXIA [None]
  - EXTRAPYRAMIDAL DISORDER [None]
  - RADICULOPATHY [None]
  - TEMPERATURE PERCEPTION TEST DECREASED [None]
